FAERS Safety Report 9509174 (Version 1)
Quarter: 2013Q3

REPORT INFORMATION
  Report Type: Spontaneous
  Country: US (occurrence: US)
  Receive Date: 20130909
  Receipt Date: 20130909
  Transmission Date: 20140515
  Serious: No
  Sender: FDA-Public Use
  Company Number: US-BRISTOL-MYERS SQUIBB COMPANY-17338435

PATIENT
  Sex: Female

DRUGS (1)
  1. ABILIFY TABS 5 MG [Suspect]
     Indication: DEPRESSION

REACTIONS (3)
  - Dystonia [Unknown]
  - Weight increased [Unknown]
  - Wrong technique in drug usage process [Unknown]
